FAERS Safety Report 4874503-X (Version None)
Quarter: 2006Q1

REPORT INFORMATION
  Report Type: 
  Country: None (occurrence: None)
  Receive Date: 20060105
  Receipt Date: 20060105
  Transmission Date: 20060701
  Serious: Yes (Hospitalization)
  Sender: FDA-Public Use
  Company Number: None

PATIENT
  Age: 32 Year
  Sex: Female
  Weight: 66.2252 kg

DRUGS (3)
  1. LAMICTAL [Suspect]
     Indication: BIPOLAR DISORDER
     Dosage: 100 MG DAILY PO
     Route: 048
     Dates: start: 20051128, end: 20051228
  2. ABILIFY [Concomitant]
  3. PROTONIX [Concomitant]

REACTIONS (2)
  - ANGIONEUROTIC OEDEMA [None]
  - STEVENS-JOHNSON SYNDROME [None]
